FAERS Safety Report 11794104 (Version 1)
Quarter: 2015Q4

REPORT INFORMATION
  Report Type: Spontaneous
  Country: US (occurrence: US)
  Receive Date: 20151202
  Receipt Date: 20151202
  Transmission Date: 20160305
  Serious: Yes (Hospitalization)
  Sender: FDA-Public Use
  Company Number: US-BAUSCH-BL-2015-028349

PATIENT
  Age: 70 Year
  Sex: Male
  Weight: 108.96 kg

DRUGS (1)
  1. XIFAXAN [Suspect]
     Active Substance: RIFAXIMIN
     Indication: HEPATIC CIRRHOSIS
     Route: 048
     Dates: start: 201503

REACTIONS (1)
  - Diabetic ulcer [Recovering/Resolving]

NARRATIVE: CASE EVENT DATE: 201507
